FAERS Safety Report 25390311 (Version 3)
Quarter: 2025Q3

REPORT INFORMATION
  Report Type: Spontaneous
  Country: CA (occurrence: CA)
  Receive Date: 20250603
  Receipt Date: 20250825
  Transmission Date: 20251020
  Serious: No
  Sender: PFIZER
  Company Number: CA-PFIZER INC-PV202500061129

PATIENT
  Age: 64 Year
  Sex: Female

DRUGS (1)
  1. ABRILADA [Suspect]
     Active Substance: ADALIMUMAB-AFZB
     Dosage: 40 MG, WEEKLY
     Dates: start: 20240105

REACTIONS (2)
  - Injection site pain [Unknown]
  - Intentional product misuse [Unknown]
